FAERS Safety Report 8516952 (Version 3)
Quarter: 2012Q4

REPORT INFORMATION
  Report Type: 
  Country: US (occurrence: US)
  Receive Date: 20120417
  Receipt Date: 20120903
  Transmission Date: 20130627
  Serious: Yes (Other)
  Sender: FDA-Public Use
  Company Number: US-BAYER-2012-034834

PATIENT
  Age: 44 Year
  Sex: Female
  Weight: 54.42 kg

DRUGS (11)
  1. YAZ [Suspect]
     Dosage: UNK
     Dates: start: 200603, end: 201008
  2. YAZ [Suspect]
     Dosage: UNK
     Dates: start: 200604, end: 201008
  3. IBUPROFEN [Concomitant]
     Indication: PAIN
     Dosage: UNK UNK, PRN
  4. FISH OIL [Concomitant]
  5. HYDROCHLOROTHIAZIDE [Concomitant]
  6. XYZAL [Concomitant]
  7. XANAX [Concomitant]
  8. FIORICET [Concomitant]
     Indication: MIGRAINE
     Dosage: as need
  9. LACTULOSE [Concomitant]
     Dosage: 2 tablespoons 2 times a day
  10. AMOXICILLIN [Concomitant]
     Indication: UPPER RESPIRATORY TRACT INFECTION
  11. PHENTERMINE [Concomitant]
     Indication: WEIGHT ABNORMAL

REACTIONS (4)
  - Thrombophlebitis superficial [None]
  - Pain [None]
  - Injury [None]
  - Mental disorder [None]
